FAERS Safety Report 24358696 (Version 4)
Quarter: 2024Q4

REPORT INFORMATION
  Report Type: Spontaneous
  Country: JP (occurrence: JP)
  Receive Date: 20240924
  Receipt Date: 20241202
  Transmission Date: 20250115
  Serious: Yes (Death, Other)
  Sender: ELI LILLY AND COMPANY
  Company Number: JP-ELI_LILLY_AND_COMPANY-JP202409011809AA

PATIENT

DRUGS (1)
  1. OLUMIANT [Suspect]
     Active Substance: BARICITINIB
     Indication: Lymphoma
     Dosage: UNK, DAILY
     Route: 048

REACTIONS (4)
  - Death [Fatal]
  - COVID-19 [Unknown]
  - Lung disorder [Unknown]
  - Off label use [Unknown]
